FAERS Safety Report 9412474 (Version 2)
Quarter: 2013Q3

REPORT INFORMATION
  Report Type: Report from Study
  Country: JP (occurrence: JP)
  Receive Date: 20130722
  Receipt Date: 20130801
  Transmission Date: 20140515
  Serious: Yes (Death, Hospitalization)
  Sender: FDA-Public Use
  Company Number: JP-SANOFI-AVENTIS-2013SA072173

PATIENT
  Age: 75 Year
  Sex: Male
  Weight: 73 kg

DRUGS (10)
  1. ELPLAT [Suspect]
     Indication: GASTRIC CANCER
     Route: 041
     Dates: start: 20130206, end: 20130620
  2. CAPECITABINE [Suspect]
     Indication: GASTRIC CANCER
     Route: 048
     Dates: start: 20130206, end: 20130627
  3. WHITE PETROLATUM [Concomitant]
     Dosage: FORM: OINTMENT, CREAM
     Route: 061
     Dates: start: 20130208
  4. GLYCERIN [Concomitant]
     Dosage: ENEMA
     Dates: start: 20130711, end: 20130711
  5. SOSEGON [Concomitant]
     Dates: start: 20130711, end: 20130711
  6. LACTEC [Concomitant]
     Dosage: STRENGTH: 500 ML
     Dates: start: 20130711, end: 20130712
  7. CYANOCOBALAMIN/PYRIDOXINE HYDROCHLORIDE/THIAMINE DISULFIDE [Concomitant]
     Dates: start: 20130711, end: 20130711
  8. SOLITA-T 3G [Concomitant]
     Dosage: 1000 ML
     Dates: start: 20130711, end: 20130711
  9. HUMULIN N [Concomitant]
     Dosage: 10 IU
  10. PENTAZOCINE [Concomitant]
     Dosage: STRENGTH: 15 MG
     Dates: start: 20130711

REACTIONS (1)
  - Mesenteric artery thrombosis [Fatal]
